FAERS Safety Report 6215148-9 (Version None)
Quarter: 2009Q2

REPORT INFORMATION
  Report Type: 
  Country: None (occurrence: None)
  Receive Date: 20090604
  Receipt Date: 20090408
  Transmission Date: 20091009
  Serious: No
  Sender: FDA-Public Use
  Company Number: US-ASTRAZENECA-2009UW08808

PATIENT
  Age: 46 Year
  Sex: Male
  Weight: 113.4 kg

DRUGS (2)
  1. PRILOSEC [Suspect]
     Route: 048
  2. WELLBUTRIN [Concomitant]

REACTIONS (3)
  - BLOOD TESTOSTERONE DECREASED [None]
  - FATIGUE [None]
  - GYNAECOMASTIA [None]
